FAERS Safety Report 25239725 (Version 1)
Quarter: 2025Q2

REPORT INFORMATION
  Report Type: Spontaneous
  Country: US (occurrence: None)
  Receive Date: 20250424
  Receipt Date: 20250424
  Transmission Date: 20250717
  Serious: Yes (Other)
  Sender: FDA-CTU
  Company Number: None

PATIENT
  Age: 50 Year
  Sex: Female
  Weight: 83.25 kg

DRUGS (1)
  1. ZEPBOUND [Suspect]
     Active Substance: TIRZEPATIDE
     Dates: start: 20250327, end: 20250410

REACTIONS (4)
  - Acne [None]
  - Herpes zoster [None]
  - Therapy cessation [None]
  - Immune system disorder [None]

NARRATIVE: CASE EVENT DATE: 20250424
